FAERS Safety Report 5720191-X (Version None)
Quarter: 2008Q2

REPORT INFORMATION
  Report Type: 
  Country: None (occurrence: None)
  Receive Date: 20080428
  Receipt Date: 20070619
  Transmission Date: 20081010
  Serious: No
  Sender: FDA-Public Use
  Company Number: US-AMGEN-US230064

PATIENT

DRUGS (3)
  1. SENSIPAR [Suspect]
     Indication: HYPERPARATHYROIDISM SECONDARY
     Route: 065
     Dates: start: 20070401
  2. VITAMIN D [Concomitant]
     Route: 065
  3. UNSPECIFIED MEDICATION [Concomitant]
     Route: 065

REACTIONS (4)
  - BLOOD CALCIUM DECREASED [None]
  - BLOOD PARATHYROID HORMONE DECREASED [None]
  - BONE PAIN [None]
  - DECREASED APPETITE [None]
